FAERS Safety Report 7738138-3 (Version None)
Quarter: 2011Q3

REPORT INFORMATION
  Report Type: 
  Country: None (occurrence: None)
  Receive Date: 20110908
  Receipt Date: 20110830
  Transmission Date: 20111222
  Serious: Yes (Hospitalization, Other)
  Sender: FDA-Public Use
  Company Number: JP-CEPHALON-2011001934

PATIENT
  Sex: Male
  Weight: 45 kg

DRUGS (18)
  1. ETIZOLAM [Concomitant]
     Dates: start: 20110127
  2. REBAMIPIDE [Concomitant]
     Dates: start: 20110127
  3. SULFAMETHOXAZOLE AND TRIMETHOPRIM [Concomitant]
     Dates: start: 20110127
  4. BROTIZOLAM [Concomitant]
     Dates: start: 20110127
  5. MIGLITOL [Concomitant]
     Dates: start: 20110127
  6. ISOTONIC SODIUM CHLORIDE [Concomitant]
     Dates: start: 20110127
  7. RITUXIMAB [Concomitant]
     Indication: NODAL MARGINAL ZONE B-CELL LYMPHOMA
  8. TRIAMCINOLONE ACETONIDE [Concomitant]
     Dates: start: 20110127
  9. MEROPENEM HYDRATE [Concomitant]
     Dates: start: 20110127
  10. BENDAMUSTINE HCL [Suspect]
     Indication: NODAL MARGINAL ZONE B-CELL LYMPHOMA
     Route: 042
     Dates: start: 20110131, end: 20110222
  11. BENDAMUSTINE HCL [Suspect]
     Route: 042
     Dates: start: 20110411
  12. VALACYCLOVIR HYDROCHLORIDE [Concomitant]
     Dates: start: 20110127
  13. ALENDRONATE SODIUM [Concomitant]
     Dates: start: 20110127
  14. FAMOTIDINE [Concomitant]
     Dates: start: 20110127
  15. ITRACONAZOLE [Concomitant]
     Dates: start: 20110127
  16. BENDAMUSTINE HCL [Suspect]
     Route: 042
     Dates: start: 20110316, end: 20110317
  17. PREDNISOLONE [Concomitant]
     Dates: start: 20110127
  18. ALFACALCIDOL [Concomitant]
     Dates: start: 20110127

REACTIONS (7)
  - LYMPHOCYTE COUNT DECREASED [None]
  - DYSURIA [None]
  - ASPARTATE AMINOTRANSFERASE INCREASED [None]
  - ALANINE AMINOTRANSFERASE INCREASED [None]
  - LIVER DISORDER [None]
  - PAIN IN EXTREMITY [None]
  - WHITE BLOOD CELL COUNT DECREASED [None]
